FAERS Safety Report 21599764 (Version 1)
Quarter: 2022Q4

REPORT INFORMATION
  Report Type: Spontaneous
  Country: IR (occurrence: IR)
  Receive Date: 20221115
  Receipt Date: 20221115
  Transmission Date: 20230113
  Serious: Yes (Other)
  Sender: FDA-Public Use
  Company Number: IR-SUN PHARMACEUTICAL INDUSTRIES LTD-2020R1-251083

PATIENT
  Age: 58 Year
  Sex: Male

DRUGS (2)
  1. CLOZAPINE [Suspect]
     Active Substance: CLOZAPINE
     Indication: Schizophrenia
     Dosage: 25 MILLIGRAM, DAILY
     Route: 065
     Dates: start: 201703
  2. CLOZAPINE [Suspect]
     Active Substance: CLOZAPINE
     Indication: Tardive dyskinesia
     Dosage: 150 MILLIGRAM, DAILY
     Route: 065

REACTIONS (2)
  - Neutropenia [Recovering/Resolving]
  - Hepatotoxicity [Recovered/Resolved]
